FAERS Safety Report 18021965 (Version 1)
Quarter: 2020Q3

REPORT INFORMATION
  Report Type: Other
  Country: IT (occurrence: IT)
  Receive Date: 20200714
  Receipt Date: 20200714
  Transmission Date: 20201103
  Serious: Yes (Other)
  Sender: FDA-Public Use
  Company Number: IT-ROCHE-2638135

PATIENT

DRUGS (2)
  1. RITUXIMAB. [Suspect]
     Active Substance: RITUXIMAB
     Indication: MARGINAL ZONE LYMPHOMA
     Dosage: ON DAY 1
     Route: 042
  2. BENDAMUSTINE [Suspect]
     Active Substance: BENDAMUSTINE
     Indication: MARGINAL ZONE LYMPHOMA
     Dosage: ON DAY 1 TO 2
     Route: 042

REACTIONS (10)
  - Diarrhoea [Unknown]
  - Pneumonitis [Unknown]
  - Pancreatitis [Unknown]
  - Fatigue [Recovered/Resolved]
  - Febrile neutropenia [Unknown]
  - Pneumonia [Unknown]
  - Nausea [Recovered/Resolved]
  - Rash [Unknown]
  - Neutropenia [Unknown]
  - Herpes zoster [Unknown]
